FAERS Safety Report 21055851 (Version 1)
Quarter: 2022Q3

REPORT INFORMATION
  Report Type: Spontaneous
  Country: FR (occurrence: None)
  Receive Date: 20220708
  Receipt Date: 20220708
  Transmission Date: 20221027
  Serious: Yes (Life-Threatening, Hospitalization)
  Sender: FDA-Public Use
  Company Number: FR-ACS-20220043

PATIENT
  Age: 35 Year
  Sex: Female

DRUGS (7)
  1. CEFTAZIDIME [Suspect]
     Active Substance: CEFTAZIDIME
     Indication: Respiratory tract infection
     Dosage: ()
  2. PIPERACILLIN AND TAZOBACTAM [Concomitant]
     Active Substance: PIPERACILLIN SODIUM\TAZOBACTAM SODIUM
     Indication: Respiratory tract infection
  3. CEFTRIAXONE [Suspect]
     Active Substance: CEFTRIAXONE
     Indication: Respiratory tract infection
     Dosage: ()
  4. SPIRAMYCIN [Concomitant]
     Active Substance: SPIRAMYCIN
     Indication: Respiratory tract infection
  5. AMIKACIN [Concomitant]
     Active Substance: AMIKACIN
     Indication: Respiratory tract infection
  6. PENTAMIDINA [Concomitant]
     Indication: Respiratory tract infection
  7. COTRIMOXAZOLE [Concomitant]
     Active Substance: SULFAMETHOXAZOLE\TRIMETHOPRIM
     Indication: Respiratory tract infection

REACTIONS (2)
  - Generalised bullous fixed drug eruption [Recovered/Resolved]
  - Product prescribing error [Recovered/Resolved]
